FAERS Safety Report 10068746 (Version 1)
Quarter: 2014Q2

REPORT INFORMATION
  Report Type: Spontaneous
  Country: BR (occurrence: BR)
  Receive Date: 20140409
  Receipt Date: 20140409
  Transmission Date: 20141212
  Serious: Yes (Hospitalization, Other)
  Sender: FDA-Public Use
  Company Number: BR-009507513-1404BRA002818

PATIENT
  Age: 33 Year
  Sex: Female
  Weight: 80 kg

DRUGS (1)
  1. MERCILON [Suspect]
     Indication: CONTRACEPTION
     Dosage: 1 DF, QPM
     Route: 048
     Dates: start: 199505, end: 201312

REACTIONS (9)
  - Cholecystectomy [Recovered/Resolved]
  - Cholelithiasis [Recovered/Resolved]
  - Stress [Not Recovered/Not Resolved]
  - Nervousness [Not Recovered/Not Resolved]
  - Liposuction [Recovered/Resolved]
  - Fat tissue increased [Recovered/Resolved]
  - Menstrual disorder [Recovered/Resolved]
  - Dysmenorrhoea [Recovered/Resolved]
  - Headache [Unknown]
